FAERS Safety Report 10005020 (Version 2)
Quarter: 2016Q1

REPORT INFORMATION
  Report Type: Spontaneous
  Country: BD (occurrence: BD)
  Receive Date: 20140312
  Receipt Date: 20160212
  Transmission Date: 20160525
  Serious: Yes (Other)
  Sender: FDA-Public Use
  Company Number: BD-BRISTOL-MYERS SQUIBB COMPANY-20469383

PATIENT
  Sex: Female

DRUGS (3)
  1. HUMAN CHORIONIC GONADOTROPHIN [Concomitant]
     Indication: OVULATION INDUCTION
     Dosage: 10000 IU, UNK
     Route: 065
  2. FOLLITROPIN ALFA [Suspect]
     Active Substance: FOLLITROPIN
     Indication: OVULATION INDUCTION
     Dosage: 75 IU, UNK
     Route: 065
  3. METFORMIN HYDROCHLORIDE. [Suspect]
     Active Substance: METFORMIN HYDROCHLORIDE
     Indication: POLYCYSTIC OVARIES
     Dosage: 500 MG, QD
     Route: 065

REACTIONS (3)
  - Abortion [Recovered/Resolved]
  - Off label use [Unknown]
  - Maternal exposure during pregnancy [Recovered/Resolved]
